FAERS Safety Report 25130492 (Version 1)
Quarter: 2025Q1

REPORT INFORMATION
  Report Type: Spontaneous
  Country: CN (occurrence: CN)
  Receive Date: 20250327
  Receipt Date: 20250327
  Transmission Date: 20250409
  Serious: Yes (Hospitalization, Other)
  Sender: MERCK SHARP & DOHME LLC
  Company Number: CN-009507513-2267860

PATIENT
  Age: 67 Year
  Sex: Male

DRUGS (10)
  1. KEYTRUDA [Suspect]
     Active Substance: PEMBROLIZUMAB
     Indication: Oesophageal squamous cell carcinoma stage III
     Dosage: 200 MG, EVERY 21 DAYS
     Route: 041
     Dates: start: 20240630, end: 20240630
  2. KEYTRUDA [Suspect]
     Active Substance: PEMBROLIZUMAB
     Indication: Oesophageal squamous cell carcinoma stage III
     Dosage: 200 MG, EVERY 21 DAYS
     Route: 041
     Dates: start: 20240723, end: 20240723
  3. KEYTRUDA [Suspect]
     Active Substance: PEMBROLIZUMAB
     Indication: Oesophageal squamous cell carcinoma stage III
     Dosage: 200 MG, EVERY 21 DAYS
     Route: 041
     Dates: start: 20240824, end: 20240824
  4. KEYTRUDA [Suspect]
     Active Substance: PEMBROLIZUMAB
     Indication: Oesophageal squamous cell carcinoma stage III
     Dosage: 200 MG, EVERY 21 DAYS
     Route: 041
     Dates: start: 20240920, end: 20240920
  5. KEYTRUDA [Suspect]
     Active Substance: PEMBROLIZUMAB
     Indication: Oesophageal squamous cell carcinoma stage III
     Dosage: 200 MG, EVERY 21 DAYS
     Route: 041
     Dates: start: 20241024, end: 20241024
  6. KEYTRUDA [Suspect]
     Active Substance: PEMBROLIZUMAB
     Indication: Oesophageal squamous cell carcinoma stage III
     Dosage: 200 MG, EVERY 21 DAYS
     Route: 041
     Dates: start: 20241114, end: 20241114
  7. KEYTRUDA [Suspect]
     Active Substance: PEMBROLIZUMAB
     Indication: Oesophageal squamous cell carcinoma stage III
     Dosage: 200 MG, EVERY 21 DAYS
     Route: 041
     Dates: start: 20241213, end: 20241213
  8. KEYTRUDA [Suspect]
     Active Substance: PEMBROLIZUMAB
     Indication: Oesophageal squamous cell carcinoma stage III
     Dosage: 200 MG, EVERY 21 DAYS
     Route: 041
     Dates: start: 20250113, end: 20250113
  9. KEYTRUDA [Suspect]
     Active Substance: PEMBROLIZUMAB
     Indication: Oesophageal squamous cell carcinoma stage III
     Dosage: 200 MG, EVERY 21 DAYS
     Route: 041
     Dates: start: 20250213, end: 20250213
  10. LINAGLIPTIN [Concomitant]
     Active Substance: LINAGLIPTIN
     Indication: Type 2 diabetes mellitus
     Dosage: 5MG, QD
     Route: 048
     Dates: start: 20240618

REACTIONS (10)
  - Diabetic ketoacidosis [Recovering/Resolving]
  - Diabetes mellitus [Unknown]
  - Ill-defined disorder [Unknown]
  - Inappropriate schedule of product administration [Unknown]
  - Inappropriate schedule of product administration [Unknown]
  - Inappropriate schedule of product administration [Unknown]
  - Inappropriate schedule of product administration [Unknown]
  - Inappropriate schedule of product administration [Unknown]
  - Inappropriate schedule of product administration [Unknown]
  - Inappropriate schedule of product administration [Unknown]

NARRATIVE: CASE EVENT DATE: 20240723
